FAERS Safety Report 14913745 (Version 2)
Quarter: 2018Q4

REPORT INFORMATION
  Report Type: Spontaneous
  Country: FR (occurrence: FR)
  Receive Date: 20180518
  Receipt Date: 20181026
  Transmission Date: 20190204
  Serious: Yes (Other)
  Sender: FDA-Public Use
  Company Number: FR-MERCK KGAA-2048062

PATIENT
  Age: 64 Year
  Sex: Female

DRUGS (1)
  1. EUTHYROX [Suspect]
     Active Substance: LEVOTHYROXINE SODIUM
     Indication: POST PROCEDURAL HYPOTHYROIDISM
     Dates: start: 201705, end: 201712

REACTIONS (23)
  - Migraine [None]
  - Tinnitus [None]
  - Anxiety [Recovered/Resolved]
  - Pain [None]
  - Thyroxine increased [Recovered/Resolved]
  - Headache [None]
  - Myalgia [None]
  - Tension [None]
  - Decreased interest [None]
  - C-reactive protein increased [None]
  - Drug intolerance [None]
  - Aggression [None]
  - Personal relationship issue [None]
  - Blood thyroid stimulating hormone decreased [None]
  - Muscle spasms [None]
  - Insomnia [None]
  - Social avoidant behaviour [None]
  - Discomfort [None]
  - Amnesia [None]
  - Asthenia [None]
  - Arrhythmia [None]
  - Fatigue [None]
  - Depression [None]

NARRATIVE: CASE EVENT DATE: 2017
